FAERS Safety Report 23447661 (Version 1)
Quarter: 2024Q1

REPORT INFORMATION
  Report Type: Spontaneous
  Country: US (occurrence: US)
  Receive Date: 20240126
  Receipt Date: 20240126
  Transmission Date: 20240409
  Serious: No
  Sender: FDA-Public Use
  Company Number: US-AMGEN-USASP2024011831

PATIENT
  Age: 38 Year
  Sex: Female

DRUGS (1)
  1. RITUXIMAB [Suspect]
     Active Substance: RITUXIMAB
     Indication: Acquired haemophilia
     Dosage: 600 MILLIGRAM, QWK (375 MG/M2) FOR 4 DOSES
     Route: 065

REACTIONS (1)
  - Off label use [Unknown]
